FAERS Safety Report 8123767-8 (Version None)
Quarter: 2012Q1

REPORT INFORMATION
  Report Type: 
  Country: None (occurrence: None)
  Receive Date: 20120208
  Receipt Date: 20120201
  Transmission Date: 20120608
  Serious: Yes (Other)
  Sender: FDA-Public Use
  Company Number: CI-ASTRAZENECA-2012SE06975

PATIENT
  Age: 34 Year
  Sex: Female
  Weight: 74 kg

DRUGS (4)
  1. NEXIUM [Suspect]
     Indication: ULCER
     Route: 048
     Dates: start: 20120124, end: 20120127
  2. TRABAR [Concomitant]
  3. CLARYTHROMYCINE [Concomitant]
     Indication: HELICOBACTER INFECTION
     Route: 048
     Dates: start: 20120124, end: 20120127
  4. AMOXICILLIN [Concomitant]
     Indication: HELICOBACTER INFECTION
     Route: 048
     Dates: start: 20120124, end: 20120127

REACTIONS (1)
  - HAEMOPTYSIS [None]
